FAERS Safety Report 13887702 (Version 1)
Quarter: 2017Q3

REPORT INFORMATION
  Report Type: Spontaneous
  Country: FR (occurrence: FR)
  Receive Date: 20170821
  Receipt Date: 20170821
  Transmission Date: 20171127
  Serious: Yes (Other)
  Sender: FDA-Public Use
  Company Number: FR-SA-2017SA134506

PATIENT
  Age: 70 Year
  Sex: Female

DRUGS (1)
  1. STILNOX [Suspect]
     Active Substance: ZOLPIDEM TARTRATE
     Dosage: 1 TABLET 1/2 AT BEDTIME AND SHE TAKES ? TABLET AT NIGHT, THAT IS A TOTAL OF 2 TABLETS
     Route: 048

REACTIONS (6)
  - Incorrect drug administration duration [Unknown]
  - Product use issue [Unknown]
  - Oculogyric crisis [Unknown]
  - Overdose [Unknown]
  - Sleep disorder [Unknown]
  - Nightmare [Unknown]
